FAERS Safety Report 12047845 (Version 1)
Quarter: 2016Q1

REPORT INFORMATION
  Report Type: Other
  Country: US (occurrence: US)
  Receive Date: 20160208
  Receipt Date: 20160208
  Transmission Date: 20160526
  Serious: Yes (Other)
  Sender: FDA-Public Use
  Company Number: US-CONCORDIA PHARMACEUTICALS INC.-CO-PL-US-2016-038

PATIENT
  Sex: Female

DRUGS (4)
  1. PLAQUENIL [Suspect]
     Active Substance: HYDROXYCHLOROQUINE SULFATE
     Indication: SYSTEMIC LUPUS ERYTHEMATOSUS
     Route: 065
     Dates: end: 2013
  2. PREDNISONE. [Suspect]
     Active Substance: PREDNISONE
     Indication: SYSTEMIC LUPUS ERYTHEMATOSUS
     Route: 065
  3. CHLOROQUINE. [Suspect]
     Active Substance: CHLOROQUINE
     Indication: SYSTEMIC LUPUS ERYTHEMATOSUS
     Route: 065
  4. QUINACRINE [Concomitant]
     Active Substance: QUINACRINE

REACTIONS (8)
  - Fatigue [None]
  - Arthralgia [None]
  - Complement factor decreased [None]
  - Systemic lupus erythematosus [Recovered/Resolved]
  - Rebound effect [None]
  - Ataxia [None]
  - Palpitations [None]
  - Tinnitus [None]
